FAERS Safety Report 17727966 (Version 1)
Quarter: 2020Q2

REPORT INFORMATION
  Report Type: Spontaneous
  Country: US (occurrence: US)
  Receive Date: 20200429
  Receipt Date: 20200429
  Transmission Date: 20200714
  Serious: Yes (Hospitalization)
  Sender: FDA-Public Use
  Company Number: None

PATIENT
  Sex: Female

DRUGS (5)
  1. TADALAFIL. [Suspect]
     Active Substance: TADALAFIL
     Indication: ESSENTIAL HYPERTENSION
     Route: 048
     Dates: start: 20190410
  2. BENZONATATE. [Concomitant]
     Active Substance: BENZONATATE
  3. HYDROXYZ HCL [Concomitant]
     Active Substance: HYDROXYZINE HYDROCHLORIDE
  4. OMEPRAZOLE. [Concomitant]
     Active Substance: OMEPRAZOLE
  5. AMBRISENTAN [Suspect]
     Active Substance: AMBRISENTAN
     Indication: ESSENTIAL HYPERTENSION
     Route: 048
     Dates: start: 20191022

REACTIONS (1)
  - Transfusion [None]
